FAERS Safety Report 9730033 (Version 1)
Quarter: 2013Q4

REPORT INFORMATION
  Report Type: Spontaneous
  Country: DE (occurrence: None)
  Receive Date: 20131203
  Receipt Date: 20131203
  Transmission Date: 20140711
  Serious: Yes (Hospitalization)
  Sender: FDA-Public Use
  Company Number: 2013P1021420

PATIENT
  Age: 54 Year
  Sex: 0
  Weight: 73.94 kg

DRUGS (1)
  1. OLANZAPINE [Suspect]
     Indication: SCHIZOPHRENIA

REACTIONS (8)
  - Post-injection delirium sedation syndrome [None]
  - Dysarthria [None]
  - Ataxia [None]
  - Hallucination, visual [None]
  - Hyperhidrosis [None]
  - Stomatitis [None]
  - Pharyngitis [None]
  - Bronchitis [None]
